FAERS Safety Report 8538661-8 (Version None)
Quarter: 2012Q3

REPORT INFORMATION
  Report Type: 
  Country: None (occurrence: None)
  Receive Date: 20120718
  Receipt Date: 20120718
  Transmission Date: 20120928
  Serious: Yes (Other)
  Sender: FDA-Public Use
  Company Number: None

PATIENT
  Sex: Female

DRUGS (1)
  1. PRAVASTATIN [Suspect]
     Indication: DIABETES MELLITUS
     Dosage: 1/2 20 MG TAB ONCE AT HS ORAL
     Route: 048
     Dates: start: 20120601, end: 20120629

REACTIONS (3)
  - DYSPHAGIA [None]
  - MUSCLE SPASMS [None]
  - DIPLEGIA [None]
